FAERS Safety Report 7634942-0 (Version None)
Quarter: 2011Q3

REPORT INFORMATION
  Report Type: 
  Country: None (occurrence: None)
  Receive Date: 20110726
  Receipt Date: 20110714
  Transmission Date: 20111222
  Serious: Yes (Hospitalization, Other)
  Sender: FDA-Public Use
  Company Number: US-BAYER-2011-007861

PATIENT
  Age: 33 Year
  Sex: Female
  Weight: 84 kg

DRUGS (7)
  1. FLUVACCIN [Concomitant]
     Dosage: UNK
     Dates: start: 20091127, end: 20091127
  2. BISMUTH SUBSALICYLATE [Concomitant]
  3. SODIUM BICARBONATE [Concomitant]
  4. YAZ [Suspect]
     Indication: CONTRACEPTION
     Dosage: UNK
     Route: 048
     Dates: start: 20080801, end: 20091201
  5. YAZ [Suspect]
     Indication: ACNE
  6. MOTRIN [Concomitant]
     Indication: PAIN
     Dosage: 400 MG, UNK
  7. TYLENOL W/ CODEINE [Concomitant]

REACTIONS (7)
  - CHEST PAIN [None]
  - PAIN [None]
  - SWELLING [None]
  - PULMONARY EMBOLISM [None]
  - DYSPNOEA [None]
  - DEEP VEIN THROMBOSIS [None]
  - MENTAL DISORDER [None]
